FAERS Safety Report 5836219-2 (Version None)
Quarter: 2008Q3

REPORT INFORMATION
  Report Type: 
  Country: None (occurrence: None)
  Receive Date: 20080805
  Receipt Date: 20080721
  Transmission Date: 20090109
  Serious: Yes (Other)
  Sender: FDA-Public Use
  Company Number: 2008S1012894

PATIENT
  Age: 67 Year
  Sex: Female

DRUGS (7)
  1. FENTANYL TRANSDERMAL SYSTEM [Suspect]
     Indication: BACK PAIN
     Dosage: 100 UG; EVERY HOUR; TRANSDERMAL
     Route: 062
     Dates: start: 20080709, end: 20080712
  2. LANTUS [Concomitant]
  3. NOVOLOG [Concomitant]
  4. CLONIDINE [Concomitant]
  5. COZAAR [Concomitant]
  6. PROTONIX /01263201/ [Concomitant]
  7. ENDOCET [Concomitant]

REACTIONS (3)
  - DRUG EFFECT INCREASED [None]
  - DYSPNOEA [None]
  - MYALGIA [None]
